FAERS Safety Report 7714756-3 (Version None)
Quarter: 2011Q3

REPORT INFORMATION
  Report Type: 
  Country: None (occurrence: None)
  Receive Date: 20110822
  Receipt Date: 20110804
  Transmission Date: 20111222
  Serious: Yes (Other)
  Sender: FDA-Public Use
  Company Number: 2011MA011353

PATIENT
  Age: 13 Year
  Sex: Male

DRUGS (4)
  1. LAMIVUDINE [Suspect]
     Indication: HIV INFECTION
  2. LOPINAVIR (LOPINAVIR) [Suspect]
     Indication: HIV INFECTION
  3. SULFATRIM [Suspect]
     Indication: HIV INFECTION
  4. ABACAVIR [Suspect]
     Indication: HIV INFECTION

REACTIONS (7)
  - BRONCHIAL OBSTRUCTION [None]
  - PNEUMONIA PNEUMOCOCCAL [None]
  - PNEUMONIA HAEMOPHILUS [None]
  - WEIGHT DECREASED [None]
  - PULMONARY GRANULOMA [None]
  - BRONCHIECTASIS [None]
  - TUBERCULOSIS [None]
